FAERS Safety Report 14974049 (Version 1)
Quarter: 2018Q2

REPORT INFORMATION
  Report Type: Report from Study
  Country: ES (occurrence: ES)
  Receive Date: 20180605
  Receipt Date: 20180605
  Transmission Date: 20180711
  Serious: Yes (Death)
  Sender: FDA-Public Use
  Company Number: ES-BAYER-2018-101290

PATIENT
  Age: 86 Year
  Sex: Male

DRUGS (1)
  1. ADIRO 100 MG COMPRIMIDOS GASTRORRESISTENTES EFG , 30 COMPRIMIDOS [Suspect]
     Active Substance: ASPIRIN
     Indication: ISCHAEMIC STROKE
     Dosage: 100 MG, QD
     Route: 048
     Dates: start: 20150511, end: 20170920

REACTIONS (2)
  - Anaemia [Fatal]
  - Haematuria [Fatal]

NARRATIVE: CASE EVENT DATE: 201708
